FAERS Safety Report 9233022 (Version 1)
Quarter: 2013Q1

REPORT INFORMATION
  Report Type: Spontaneous
  Country: US (occurrence: None)
  Receive Date: 20121031
  Receipt Date: 20121031
  Transmission Date: 20140127
  Serious: Yes (Hospitalization)
  Sender: FDA-Public Use
  Company Number: PHEH2012US014220

PATIENT
  Age: 53 Year
  Sex: Female
  Weight: 46.9 kg

DRUGS (4)
  1. GILENYA (FTY)CAPSULE, 0.5MG [Suspect]
     Indication: MULTIPLE SCLEROSIS
     Route: 048
     Dates: start: 20120718
  2. OXYBUTYNIN (OXYBUTYNIN) [Concomitant]
  3. CALCIUM WITH VITAMIN D (CALCIUM PHOSPHATE, CALCIUM SODIUM ALCTATE, ERGOCALCIFEROL) [Concomitant]
  4. CENTRUM SILVER (ASCORBIC ACID), CALCIUM, MINERALS NOS, RETINOL, TOCOPHERYL ACETATE, VITAMIN B NOS, VITAMINS NOS, ZINC) [Concomitant]

REACTIONS (7)
  - Bradycardia [None]
  - Arthropathy [None]
  - Monocyte percentage increased [None]
  - Eosinophil percentage increased [None]
  - Blood pressure decreased [None]
  - Hypertension [None]
  - Fatigue [None]
